FAERS Safety Report 9127637 (Version 1)
Quarter: 2013Q1

REPORT INFORMATION
  Report Type: Spontaneous
  Country: IT (occurrence: IT)
  Receive Date: 20130122
  Receipt Date: 20130122
  Transmission Date: 20140127
  Serious: Yes (Other)
  Sender: FDA-Public Use
  Company Number: IT-ACCORD-016070

PATIENT
  Age: 80 Year
  Sex: Male

DRUGS (5)
  1. GEMCITABINE [Suspect]
     Indication: LUNG NEOPLASM MALIGNANT
     Dosage: PHARMACEUTICAL FORM:CONCENTRATEFOR SOLUTION FOR INJECTION
     Route: 042
     Dates: start: 20121114, end: 20121114
  2. ONDANSETRON [Concomitant]
     Indication: LUNG NEOPLASM MALIGNANT
     Dates: start: 20121114, end: 20121114
  3. SOLDESAM [Concomitant]
     Indication: LUNG NEOPLASM MALIGNANT
     Route: 042
     Dates: start: 20121114, end: 20121114
  4. RANIDIL [Concomitant]
     Indication: LUNG NEOPLASM MALIGNANT
     Dates: start: 20121114, end: 20121114
  5. CARBOPLATIN [Suspect]
     Indication: LUNG NEOPLASM MALIGNANT
     Route: 042
     Dates: start: 20121114, end: 20121114

REACTIONS (6)
  - Stomatitis [Recovering/Resolving]
  - Dizziness [Recovering/Resolving]
  - Dyspnoea [Recovering/Resolving]
  - Dermatitis acneiform [Recovering/Resolving]
  - Eye pain [Recovering/Resolving]
  - Eye pruritus [Recovering/Resolving]
